FAERS Safety Report 15827098 (Version 1)
Quarter: 2019Q1

REPORT INFORMATION
  Report Type: Spontaneous
  Country: US (occurrence: US)
  Receive Date: 20190115
  Receipt Date: 20190115
  Transmission Date: 20190417
  Serious: Yes (Hospitalization)
  Sender: FDA-Public Use
  Company Number: US-VERTEX PHARMACEUTICALS-2019-000209

PATIENT
  Sex: Female

DRUGS (12)
  1. ORKAMBI [Suspect]
     Active Substance: IVACAFTOR\LUMACAFTOR
     Indication: CYSTIC FIBROSIS
     Dosage: 200/250 MG, BID
     Route: 048
     Dates: start: 20180213
  2. SODIUM CHLORIDE. [Concomitant]
     Active Substance: SODIUM CHLORIDE
  3. QVAR [Concomitant]
     Active Substance: BECLOMETHASONE DIPROPIONATE
  4. FLUTICASONE. [Concomitant]
     Active Substance: FLUTICASONE
  5. BUDESONIDE. [Concomitant]
     Active Substance: BUDESONIDE
  6. CAYSTON [Concomitant]
     Active Substance: AZTREONAM
  7. PROAIR HFA [Concomitant]
     Active Substance: ALBUTEROL SULFATE
  8. AZITHROMYCIN ANHYDROUS. [Concomitant]
     Active Substance: AZITHROMYCIN ANHYDROUS
  9. ZENPEP [Concomitant]
     Active Substance: PANCRELIPASE AMYLASE\PANCRELIPASE LIPASE\PANCRELIPASE PROTEASE
  10. AMOXICILLIN/CLAV POT [Concomitant]
  11. TOBRAMYCIN. [Concomitant]
     Active Substance: TOBRAMYCIN
  12. CYPROHEPTADINE. [Concomitant]
     Active Substance: CYPROHEPTADINE

REACTIONS (1)
  - Infection [Unknown]
